FAERS Safety Report 6207431-8 (Version None)
Quarter: 2009Q2

REPORT INFORMATION
  Report Type: 
  Country: None (occurrence: None)
  Receive Date: 20090528
  Receipt Date: 20090521
  Transmission Date: 20091009
  Serious: Yes (Other)
  Sender: FDA-Public Use
  Company Number: PHEH2008US07415

PATIENT
  Sex: Female
  Weight: 57.596 kg

DRUGS (7)
  1. ZOMETA [Suspect]
  2. ARIMIDEX [Concomitant]
     Dosage: UNK
  3. HYDROCODONE BITARTRATE [Concomitant]
     Dosage: 5 MG, QID
  4. XELODA [Concomitant]
  5. MELATONIN [Concomitant]
  6. COD-LIVER OIL [Concomitant]
  7. RADIATION THERAPY [Concomitant]
     Dosage: UNK

REACTIONS (18)
  - ANHEDONIA [None]
  - ANXIETY [None]
  - BONE DISORDER [None]
  - DEBRIDEMENT [None]
  - DENTAL PLAQUE [None]
  - GINGIVAL BLEEDING [None]
  - GINGIVITIS [None]
  - HYDRONEPHROSIS [None]
  - INJURY [None]
  - LYMPHADENOPATHY [None]
  - METASTASES TO BONE [None]
  - METASTASES TO LIVER [None]
  - OSTEONECROSIS [None]
  - PAIN [None]
  - PERIODONTAL DISEASE [None]
  - TOOTH DISCOLOURATION [None]
  - TOOTH EXTRACTION [None]
  - TOOTHACHE [None]
